FAERS Safety Report 9002085 (Version 3)
Quarter: 2013Q4

REPORT INFORMATION
  Report Type: Spontaneous
  Country: US (occurrence: US)
  Receive Date: 20130107
  Receipt Date: 20131029
  Transmission Date: 20140711
  Serious: Yes (Death)
  Sender: FDA-Public Use
  Company Number: US-BAYER-2013-000292

PATIENT
  Age: 51 Year
  Sex: Female
  Weight: 59.86 kg

DRUGS (2)
  1. GIANVI [Suspect]
     Indication: PREMENSTRUAL SYNDROME
     Dosage: UNK
     Dates: end: 201101
  2. YAZ [Suspect]
     Indication: PREMENSTRUAL SYNDROME
     Dosage: UNK
     Dates: start: 200808

REACTIONS (5)
  - Pulmonary embolism [Fatal]
  - Dyspnoea [Fatal]
  - Pain [Fatal]
  - Injury [Fatal]
  - Pain [None]
